FAERS Safety Report 13266917 (Version 2)
Quarter: 2017Q1

REPORT INFORMATION
  Report Type: Spontaneous
  Country: US (occurrence: US)
  Receive Date: 20170224
  Receipt Date: 20170308
  Transmission Date: 20170428
  Serious: No
  Sender: FDA-Public Use
  Company Number: ALCN2017US001580

PATIENT
  Sex: Female
  Weight: 54.42 kg

DRUGS (7)
  1. CITRICAL D [Concomitant]
     Indication: OSTEOPENIA
     Dosage: 1000 GTT, TID
     Route: 065
     Dates: start: 2015
  2. CIPRODEX [Suspect]
     Active Substance: CIPROFLOXACIN HYDROCHLORIDE\DEXAMETHASONE
     Indication: EAR INFECTION STAPHYLOCOCCAL
     Dosage: 5 GTT, BID
     Route: 001
     Dates: start: 20170201
  3. CIPRODEX [Suspect]
     Active Substance: CIPROFLOXACIN HYDROCHLORIDE\DEXAMETHASONE
     Dosage: 5 GTT, QD
     Route: 001
     Dates: start: 20170215, end: 20170228
  4. ZANTAC [Concomitant]
     Active Substance: RANITIDINE HYDROCHLORIDE
     Indication: GASTROOESOPHAGEAL REFLUX DISEASE
     Dosage: 150 MG, BID
     Route: 065
     Dates: start: 2012
  5. LORAZEPAM. [Concomitant]
     Active Substance: LORAZEPAM
     Indication: PANIC ATTACK
     Dosage: 1.5 GTT, BID (1.5
     Route: 065
     Dates: start: 2014
  6. CEPHALEXIN. [Concomitant]
     Active Substance: CEPHALEXIN
     Indication: STAPHYLOCOCCAL INFECTION
     Dosage: 500 MG, QID
     Route: 065
     Dates: start: 20170214, end: 20170226
  7. OXYGEN. [Concomitant]
     Active Substance: OXYGEN
     Indication: SLEEP APNOEA SYNDROME
     Dosage: UNK UNK, QHS
     Route: 065
     Dates: start: 2013

REACTIONS (1)
  - Abdominal discomfort [Unknown]
